FAERS Safety Report 6696001-3 (Version None)
Quarter: 2010Q2

REPORT INFORMATION
  Report Type: 
  Country: None (occurrence: None)
  Receive Date: 20100426
  Receipt Date: 20100413
  Transmission Date: 20101027
  Serious: Yes (Other)
  Sender: FDA-Public Use
  Company Number: PHEH2005US11369

PATIENT
  Sex: Male
  Weight: 84.354 kg

DRUGS (14)
  1. AREDIA [Suspect]
     Indication: MULTIPLE MYELOMA
     Dosage: 90 MG, QMO
  2. PREVACID [Concomitant]
     Dosage: 30 MG, BID
     Dates: start: 20040603
  3. OXYCONTIN [Concomitant]
  4. PREDNISONE [Concomitant]
  5. OXYCODONE [Concomitant]
     Dosage: 20 MG, Q12H
     Dates: start: 20040702
  6. TAMSULOSIN HYDROCHLORIDE [Concomitant]
  7. ALLOPURINOL [Concomitant]
     Dosage: 300 MG, QD
     Dates: start: 20030630
  8. LORAZEPAM [Concomitant]
     Dosage: 0.5 MG, Q6H
     Dates: start: 20030630
  9. ASPIRIN [Concomitant]
     Dosage: 81 MG, QD
     Dates: start: 20071024
  10. FLOMAX [Concomitant]
     Dosage: 0.4 MG, BID
     Dates: start: 20030630
  11. PROCHLORPERAZINE MALEATE [Concomitant]
     Dosage: 10 MG, BID
     Dates: start: 20051019
  12. PRILOSEC [Concomitant]
  13. HYDROCODONE BITARTRATE [Concomitant]
  14. CLARITIN [Concomitant]

REACTIONS (16)
  - ANXIETY [None]
  - CATARACT [None]
  - DECREASED INTEREST [None]
  - DEPRESSION [None]
  - GENERAL PHYSICAL HEALTH DETERIORATION [None]
  - IMPAIRED HEALING [None]
  - MACULAR DEGENERATION [None]
  - ORAL DISCOMFORT [None]
  - OSTEONECROSIS [None]
  - PAIN [None]
  - SINUSITIS [None]
  - TENDERNESS [None]
  - TOOTH DISORDER [None]
  - TOOTH EXTRACTION [None]
  - TOOTH INFECTION [None]
  - TOOTHACHE [None]
